FAERS Safety Report 9838767 (Version 3)
Quarter: 2014Q2

REPORT INFORMATION
  Report Type: Not Available
  Country: US (occurrence: US)
  Receive Date: 20140123
  Receipt Date: 20140404
  Transmission Date: 20141212
  Serious: Yes (Hospitalization)
  Sender: FDA-Public Use
  Company Number: US-VIROPHARMA INCORPORATED-20140114CINRY5652

PATIENT
  Age: 62 Year
  Sex: Male

DRUGS (2)
  1. CINRYZE (C1 ESTERASE INHIBITOR (HUMAN)) [Suspect]
     Indication: HEREDITARY ANGIOEDEMA
     Route: 042
     Dates: start: 20130717, end: 201312
  2. CINRYZE (C1 ESTERASE INHIBITOR (HUMAN)) [Suspect]
     Indication: PROPHYLAXIS
     Route: 042
     Dates: start: 201312

REACTIONS (3)
  - Renal tubular necrosis [Recovered/Resolved]
  - Dehydration [Recovered/Resolved]
  - Hereditary angioedema [Recovered/Resolved]
